FAERS Safety Report 8030271-4 (Version None)
Quarter: 2012Q1

REPORT INFORMATION
  Report Type: 
  Country: None (occurrence: None)
  Receive Date: 20120109
  Receipt Date: 20111226
  Transmission Date: 20120608
  Serious: Yes (Hospitalization, Other)
  Sender: FDA-Public Use
  Company Number: PHHY2011JP68204

PATIENT
  Sex: Female
  Weight: 32 kg

DRUGS (8)
  1. GASMOTIN [Concomitant]
     Indication: GASTRITIS
     Dosage: 2 DF, UNK
     Route: 048
     Dates: start: 20091222
  2. ARICEPT [Concomitant]
  3. FEMARA [Suspect]
     Dosage: 7.5 MG, UNK
     Route: 048
  4. MAGMITT [Concomitant]
     Indication: CONSTIPATION
     Dosage: 3 DF, UNK
     Route: 048
     Dates: start: 20090818, end: 20090915
  5. ALENDRONATE SODIUM [Suspect]
     Indication: OSTEOPOROSIS
     Dosage: 5 MG, DAILY
     Dates: start: 20090219
  6. FEMARA [Suspect]
     Indication: BREAST CANCER
     Dosage: 2.5 MG, TID
     Route: 048
     Dates: start: 20080306, end: 20110704
  7. RABEPRAZOLE SODIUM [Concomitant]
     Indication: GASTROOESOPHAGEAL REFLUX DISEASE
     Dosage: 1 DF, UNK
     Route: 048
     Dates: start: 20091222
  8. FEMARA [Suspect]
     Dosage: 5 MG, WEEKLY
     Dates: start: 20090219

REACTIONS (3)
  - FAECES DISCOLOURED [None]
  - IDIOPATHIC THROMBOCYTOPENIC PURPURA [None]
  - ANAEMIA [None]
